FAERS Safety Report 11183265 (Version 2)
Quarter: 2015Q3

REPORT INFORMATION
  Report Type: Report from Study
  Country: GB (occurrence: GB)
  Receive Date: 20150611
  Receipt Date: 20150908
  Transmission Date: 20151125
  Serious: Yes (Death)
  Sender: FDA-Public Use
  Company Number: GB-ABBVIE-15K-167-1407797-00

PATIENT
  Sex: Female
  Weight: 58 kg

DRUGS (1)
  1. HUMIRA [Suspect]
     Active Substance: ADALIMUMAB
     Indication: PSORIASIS
     Route: 065
     Dates: start: 20130802, end: 20141201

REACTIONS (6)
  - Hepatitis alcoholic [Fatal]
  - Hepatic failure [Fatal]
  - Fatty liver alcoholic [Fatal]
  - Peritonitis [Fatal]
  - Cirrhosis alcoholic [Fatal]
  - Streptococcal infection [Fatal]
